FAERS Safety Report 4802249-2 (Version None)
Quarter: 2005Q4

REPORT INFORMATION
  Report Type: 
  Country: None (occurrence: None)
  Receive Date: 20051012
  Receipt Date: 20050930
  Transmission Date: 20060501
  Serious: Yes (Hospitalization)
  Sender: FDA-Public Use
  Company Number: 005745

PATIENT
  Age: 77 Year
  Sex: Female
  Weight: 82.5 kg

DRUGS (12)
  1. DESMOPRESSIN ACETATE [Suspect]
     Indication: URINARY INCONTINENCE
     Dosage: SEE IMAGE
     Route: 048
     Dates: start: 20050901, end: 20050903
  2. DESMOPRESSIN ACETATE [Suspect]
     Indication: URINARY INCONTINENCE
     Dosage: SEE IMAGE
     Route: 048
     Dates: start: 20050913, end: 20050916
  3. ATENOLOL [Concomitant]
  4. LISINOPRIL [Concomitant]
  5. HYDROCHLOROTHIAZIDE [Concomitant]
  6. ALLOPURINOL [Concomitant]
  7. CELEBREX [Concomitant]
  8. DARVOCET-N (DEXTROPROPOXYPHENE NAPSILATE) [Concomitant]
  9. NEURONTIN [Concomitant]
  10. BETOPIC (BETAXOLOL HYDROCHLORIDE) [Concomitant]
  11. DITROPAN [Suspect]
     Dosage: 1 TABLET, QD, ORAL
     Route: 048
     Dates: start: 20050901, end: 20050903
  12. DITROPAN [Suspect]
     Dosage: 1 TABLET, QD, ORAL
     Route: 048
     Dates: start: 20050927

REACTIONS (7)
  - ANOREXIA [None]
  - BLOOD POTASSIUM DECREASED [None]
  - BLOOD SODIUM DECREASED [None]
  - DIZZINESS [None]
  - NAUSEA [None]
  - RETCHING [None]
  - VOMITING [None]
